FAERS Safety Report 9917927 (Version 1)
Quarter: 2014Q1

REPORT INFORMATION
  Report Type: Spontaneous
  Country: SE (occurrence: SE)
  Receive Date: 20140222
  Receipt Date: 20140222
  Transmission Date: 20141002
  Serious: Yes (Life-Threatening, Other)
  Sender: FDA-Public Use
  Company Number: SE-009507513-1402SWE008315

PATIENT
  Age: 63 Year
  Sex: Female

DRUGS (3)
  1. ESMERON [Suspect]
     Indication: ENDOTRACHEAL INTUBATION
     Route: 042
     Dates: start: 20131113, end: 20131113
  2. THIOPENTAL SODIUM [Concomitant]
  3. FENTANYL [Concomitant]

REACTIONS (4)
  - Urticaria [Recovered/Resolved]
  - Anaphylactic shock [Recovered/Resolved]
  - Blood pressure decreased [Recovered/Resolved]
  - Bronchospasm [Recovered/Resolved]
